FAERS Safety Report 9288610 (Version 1)
Quarter: 2013Q2

REPORT INFORMATION
  Report Type: Spontaneous
  Country: US (occurrence: US)
  Receive Date: 20130514
  Receipt Date: 20130514
  Transmission Date: 20140414
  Serious: No
  Sender: FDA-Public Use
  Company Number: US-OPTIMER PHARMACEUTICALS, INC.-20110043

PATIENT
  Sex: 0

DRUGS (8)
  1. DIFICID [Suspect]
     Indication: CLOSTRIDIAL INFECTION
     Dosage: 200 MG, BID
     Route: 048
     Dates: start: 20111015, end: 20111024
  2. SYNTHROID [Concomitant]
     Dosage: UNK
  3. XANAX [Concomitant]
     Dosage: UNK
  4. WELCHOL [Concomitant]
     Dosage: UNK
  5. REMERON [Concomitant]
     Dosage: UNK
  6. DITROPAN [Concomitant]
     Dosage: UNK
  7. BACLOFEN [Concomitant]
     Dosage: UNK
  8. COPAXONE [Concomitant]
     Dosage: UNK

REACTIONS (3)
  - Gastrointestinal sounds abnormal [Not Recovered/Not Resolved]
  - Abdominal pain [Not Recovered/Not Resolved]
  - Flatulence [Not Recovered/Not Resolved]
